FAERS Safety Report 9829870 (Version 2)
Quarter: 2014Q1

REPORT INFORMATION
  Report Type: Spontaneous
  Country: US (occurrence: US)
  Receive Date: 20140120
  Receipt Date: 20140120
  Transmission Date: 20141002
  Serious: Yes (Death)
  Sender: FDA-Public Use
  Company Number: US-ROCHE-1315517

PATIENT
  Age: 66 Year
  Sex: Female
  Weight: 68.55 kg

DRUGS (8)
  1. XELODA [Suspect]
     Indication: BREAST CANCER METASTATIC
     Route: 065
  2. INSULIN [Concomitant]
  3. GABAPENTIN [Concomitant]
  4. TIROSINT [Concomitant]
  5. SYNTHROID [Concomitant]
  6. TIROSINT [Concomitant]
  7. XGEVA [Concomitant]
  8. LIPITOR [Concomitant]

REACTIONS (3)
  - Thyroid disorder [Unknown]
  - Blood thyroid stimulating hormone increased [Unknown]
  - Death [Fatal]
